FAERS Safety Report 9974096 (Version 8)
Quarter: 2014Q3

REPORT INFORMATION
  Report Type: Spontaneous
  Country: US (occurrence: US)
  Receive Date: 20140306
  Receipt Date: 20140911
  Transmission Date: 20150326
  Serious: Yes (Death, Hospitalization)
  Sender: FDA-Public Use
  Company Number: US-GLAXOSMITHKLINE-A1063609A

PATIENT
  Age: 37 Year
  Sex: Female

DRUGS (3)
  1. WARFARIN [Concomitant]
     Active Substance: WARFARIN
  2. FLOLAN [Suspect]
     Active Substance: EPOPROSTENOL SODIUM
     Indication: PULMONARY ARTERIAL HYPERTENSION
     Dosage: 39.4NGKM UNKNOWN
     Route: 065
     Dates: start: 20050401
  3. REVATIO [Concomitant]
     Active Substance: SILDENAFIL CITRATE

REACTIONS (6)
  - Ill-defined disorder [Unknown]
  - Investigation [Unknown]
  - Respiratory distress [Unknown]
  - Death [Fatal]
  - Vomiting [Unknown]
  - Endotracheal intubation [Unknown]

NARRATIVE: CASE EVENT DATE: 20140226
